FAERS Safety Report 20235540 (Version 1)
Quarter: 2021Q4

REPORT INFORMATION
  Report Type: Spontaneous
  Country: IT (occurrence: IT)
  Receive Date: 20211228
  Receipt Date: 20211228
  Transmission Date: 20220303
  Serious: Yes (Other)
  Sender: FDA-Public Use
  Company Number: IT-LUPIN PHARMACEUTICALS INC.-2021-25606

PATIENT
  Age: 51 Year
  Sex: Female

DRUGS (1)
  1. BETAMETHASONE [Suspect]
     Active Substance: BETAMETHASONE
     Indication: Product used for unknown indication
     Dosage: 1 MILLIGRAM, PRESCRIBED 20 PILLS FOR ABOUT 2 YEARS, WEEK
     Route: 065

REACTIONS (3)
  - Cushing^s syndrome [Recovered/Resolved]
  - Hypopituitarism [Recovered/Resolved]
  - Secondary hypogonadism [Recovered/Resolved]
